FAERS Safety Report 7501211-9 (Version None)
Quarter: 2011Q2

REPORT INFORMATION
  Report Type: 
  Country: None (occurrence: None)
  Receive Date: 20110524
  Receipt Date: 20110518
  Transmission Date: 20111010
  Serious: Yes (Life-Threatening, Hospitalization, Other)
  Sender: FDA-Public Use
  Company Number: US-ROXANE LABORATORIES, INC.-2011-RO-00687RO

PATIENT
  Age: 33 Year
  Sex: Female

DRUGS (3)
  1. ESCITALOPRAM [Suspect]
     Route: 048
  2. ALCOHOL [Suspect]
     Route: 048
  3. LITHIUM CARBONATE [Suspect]
     Route: 048

REACTIONS (3)
  - OVERDOSE [None]
  - ELECTROCARDIOGRAM QT PROLONGED [None]
  - SUICIDE ATTEMPT [None]
